FAERS Safety Report 20754615 (Version 1)
Quarter: 2022Q2

REPORT INFORMATION
  Report Type: Spontaneous
  Country: US (occurrence: None)
  Receive Date: 20220426
  Receipt Date: 20220426
  Transmission Date: 20220720
  Serious: No
  Sender: FDA-Public Use
  Company Number: US-ROCHE-2971144

PATIENT
  Sex: Male

DRUGS (1)
  1. ESBRIET [Suspect]
     Active Substance: PIRFENIDONE
     Indication: Product used for unknown indication
     Dosage: 3 TIMES A DAY
     Route: 048
     Dates: start: 202102, end: 202111

REACTIONS (5)
  - Weight decreased [Unknown]
  - Red blood cell count increased [Unknown]
  - Decreased appetite [Unknown]
  - Liver function test abnormal [Unknown]
  - Tremor [Unknown]
